FAERS Safety Report 7516280-X (Version None)
Quarter: 2011Q2

REPORT INFORMATION
  Report Type: 
  Country: None (occurrence: None)
  Receive Date: 20110601
  Receipt Date: 20110519
  Transmission Date: 20111010
  Serious: Yes (Hospitalization, Other)
  Sender: FDA-Public Use
  Company Number: PHHY2011JP29842

PATIENT
  Sex: Male
  Weight: 65 kg

DRUGS (2)
  1. RASILEZ [Suspect]
     Indication: HYPERTENSION
     Dosage: 150 MG, QD
     Route: 048
     Dates: start: 20100701, end: 20110405
  2. AMLODIPINE BESYLATE [Concomitant]
     Dosage: 5 MG, QD
     Route: 048

REACTIONS (8)
  - MUSCULAR WEAKNESS [None]
  - INFECTION [None]
  - INAPPROPRIATE ANTIDIURETIC HORMONE SECRETION [None]
  - DIZZINESS [None]
  - RECTAL NEOPLASM [None]
  - GAIT DISTURBANCE [None]
  - HYPONATRAEMIA [None]
  - DISORIENTATION [None]
